FAERS Safety Report 7590529-X (Version None)
Quarter: 2011Q3

REPORT INFORMATION
  Report Type: 
  Country: None (occurrence: None)
  Receive Date: 20110705
  Receipt Date: 20110621
  Transmission Date: 20111222
  Serious: Yes (Other)
  Sender: FDA-Public Use
  Company Number: US-BAYER-201037281NA

PATIENT
  Sex: Female

DRUGS (3)
  1. FAMPRIDINE [Concomitant]
     Indication: PRODUCT USED FOR UNKNOWN INDICATION
     Dates: start: 20100101
  2. AMPARO [Concomitant]
     Dates: start: 20100101
  3. BETASERON [Suspect]
     Indication: MULTIPLE SCLEROSIS
     Dosage: AS USED DOSE: UNK
     Route: 065
     Dates: start: 19980101

REACTIONS (3)
  - MULTIPLE SCLEROSIS [None]
  - GAIT DISTURBANCE [None]
  - LIMB DISCOMFORT [None]
